FAERS Safety Report 14868676 (Version 2)
Quarter: 2019Q1

REPORT INFORMATION
  Report Type: Spontaneous
  Country: US (occurrence: US)
  Receive Date: 20180509
  Receipt Date: 20190117
  Transmission Date: 20190417
  Serious: No
  Sender: FDA-Public Use
  Company Number: US-PFIZER INC-2018001518

PATIENT
  Age: 43 Year
  Sex: Female

DRUGS (3)
  1. TREXALL [Concomitant]
     Active Substance: METHOTREXATE SODIUM
  2. RASUVO [Concomitant]
     Active Substance: METHOTREXATE SODIUM
  3. DOCETAXEL. [Suspect]
     Active Substance: DOCETAXEL
     Indication: BREAST CANCER
     Dosage: UNK UNK, EVERY 3 WEEKS (1 CYCLE)
     Dates: start: 20120705, end: 20121218

REACTIONS (4)
  - Hair colour changes [Not Recovered/Not Resolved]
  - Hair texture abnormal [Not Recovered/Not Resolved]
  - Hair disorder [Not Recovered/Not Resolved]
  - Alopecia [Not Recovered/Not Resolved]

NARRATIVE: CASE EVENT DATE: 201208
